FAERS Safety Report 10385992 (Version 1)
Quarter: 2014Q1

REPORT INFORMATION
  Report Type: Spontaneous
  Country: US (occurrence: None)
  Receive Date: 20140306
  Receipt Date: 20140306
  Transmission Date: 20141002
  Serious: Yes (Other)
  Sender: FDA-Public Use
  Company Number: 163-21880-13060590

PATIENT
  Age: 64 Year
  Sex: Male
  Weight: 77.29 kg

DRUGS (8)
  1. REVLIMID [Suspect]
     Indication: PLASMA CELL MYELOMA
     Route: 048
     Dates: start: 201205, end: 2012
  2. ACYCLOVIR (ACICLOVIR) (TABLETS) [Concomitant]
  3. ATIVAN (LORAZEPAM) (TABLETS) [Concomitant]
  4. POTASSIUM CHLORIDE [Concomitant]
  5. ASPIRIN (ACETYLSALICYLIC ACID) (ENTERIC-COATED TABLETS) [Concomitant]
  6. PROTONIX [Concomitant]
  7. ZOFRAN (ONDANSETRON HYDROCHLORIDE) [Concomitant]
  8. PAMIDRONATE (PAMIDRONATE DISODIUM) [Concomitant]

REACTIONS (2)
  - Platelet count decreased [None]
  - Pancytopenia [None]
